FAERS Safety Report 19078179 (Version 1)
Quarter: 2021Q1

REPORT INFORMATION
  Report Type: Spontaneous
  Country: ES (occurrence: ES)
  Receive Date: 20210331
  Receipt Date: 20210331
  Transmission Date: 20210420
  Serious: Yes (Other)
  Sender: FDA-Public Use
  Company Number: ES-B.I. PHARMACEUTICALS,INC./RIDGEFIELD-2019-BI-107291

PATIENT
  Age: 54 Year
  Sex: Female

DRUGS (4)
  1. DOCETAXEL. [Suspect]
     Active Substance: DOCETAXEL
     Indication: LUNG ADENOCARCINOMA STAGE III
     Dosage: DAY 1, EVERY 21 DAYS X 4 CYCLES
     Route: 042
     Dates: start: 201907, end: 201910
  2. ENOXAPARIN [Concomitant]
     Active Substance: ENOXAPARIN
     Indication: PRODUCT USED FOR UNKNOWN INDICATION
     Route: 065
  3. VARGATEF [Suspect]
     Active Substance: NINTEDANIB
     Route: 048
     Dates: start: 202011
  4. VARGATEF [Suspect]
     Active Substance: NINTEDANIB
     Indication: LUNG ADENOCARCINOMA STAGE III
     Dosage: NINTEDANIB 200 MG/12 H ORAL DAYS 2?21 EVERY 21 DAYS X4 CYCLES. CONTINUED NINTEDANIB AS MONOTHERAPY S
     Route: 048
     Dates: start: 201907, end: 202009

REACTIONS (4)
  - Nausea [Unknown]
  - Vomiting [Unknown]
  - Malignant neoplasm progression [Recovering/Resolving]
  - Diarrhoea [Unknown]

NARRATIVE: CASE EVENT DATE: 201907
